FAERS Safety Report 10578346 (Version 2)
Quarter: 2014Q4

REPORT INFORMATION
  Report Type: Spontaneous
  Country: CH (occurrence: CH)
  Receive Date: 20141112
  Receipt Date: 20141119
  Transmission Date: 20150529
  Serious: Yes (Death, Hospitalization)
  Sender: FDA-Public Use
  Company Number: PHHY2014CH142915

PATIENT
  Sex: Female

DRUGS (2)
  1. AFINITOR [Suspect]
     Active Substance: EVEROLIMUS
     Route: 065
     Dates: end: 201311
  2. AFINITOR [Suspect]
     Active Substance: EVEROLIMUS
     Indication: RENAL CELL CARCINOMA
     Dosage: 10 MG
     Route: 065
     Dates: start: 201308

REACTIONS (6)
  - Hyperglycaemia [Recovering/Resolving]
  - Malignant neoplasm progression [Fatal]
  - Herpes zoster [Recovering/Resolving]
  - Periorbital oedema [Recovering/Resolving]
  - Stomatitis [Recovering/Resolving]
  - Spinal fracture [Unknown]

NARRATIVE: CASE EVENT DATE: 201312
